FAERS Safety Report 10698512 (Version 1)
Quarter: 2015Q1

REPORT INFORMATION
  Report Type: Spontaneous
  Country: CH (occurrence: CH)
  Receive Date: 20150108
  Receipt Date: 20150108
  Transmission Date: 20150721
  Serious: Yes (Other)
  Sender: FDA-Public Use
  Company Number: PHHY2014CH171226

PATIENT
  Age: 45 Year
  Sex: Female

DRUGS (3)
  1. AFINITOR [Suspect]
     Active Substance: EVEROLIMUS
     Dosage: 5 MG, UNK
     Route: 065
  2. AFINITOR [Suspect]
     Active Substance: EVEROLIMUS
     Indication: BREAST CANCER METASTATIC
     Dosage: 10 MG, UNK
     Route: 065
  3. AFINITOR [Suspect]
     Active Substance: EVEROLIMUS
     Dosage: UNK
     Route: 065

REACTIONS (11)
  - Dry mouth [Recovering/Resolving]
  - Dry skin [Recovering/Resolving]
  - Rash [Recovered/Resolved]
  - Malignant neoplasm progression [Unknown]
  - Fatigue [Recovering/Resolving]
  - Lymphoedema [Unknown]
  - Diarrhoea [Recovering/Resolving]
  - Spinal pain [Unknown]
  - Decreased appetite [Unknown]
  - Dysgeusia [Recovering/Resolving]
  - Nausea [Recovering/Resolving]
